FAERS Safety Report 25521254 (Version 1)
Quarter: 2025Q3

REPORT INFORMATION
  Report Type: Spontaneous
  Country: US (occurrence: US)
  Receive Date: 20250705
  Receipt Date: 20250705
  Transmission Date: 20251020
  Serious: No
  Sender: STALLERGENES
  Company Number: US-STALCOR-2025-AER-01082

PATIENT
  Sex: Female

DRUGS (8)
  1. WEST WHEAT GRASS [Suspect]
     Active Substance: PASCOPYRUM SMITHII POLLEN
     Indication: Product used for unknown indication
     Route: 058
  2. RED ALDER POLLEN Alnus rubra [Concomitant]
     Indication: Product used for unknown indication
     Route: 058
  3. ELDER, BOX [Concomitant]
     Indication: Product used for unknown indication
     Route: 058
  4. SWEET GUM [Concomitant]
     Active Substance: LIQUIDAMBAR STYRACIFLUA POLLEN
     Indication: Product used for unknown indication
     Route: 058
  5. HACKBERRY [Concomitant]
     Active Substance: CELTIS OCCIDENTALIS POLLEN
     Indication: Product used for unknown indication
     Route: 058
  6. KENTUCKY BLUEGRASS/JUNE [Concomitant]
     Indication: Product used for unknown indication
     Route: 058
  7. PIGWEED, ROUGH [Concomitant]
     Indication: Product used for unknown indication
     Route: 058
  8. WATER HEMP, W [Concomitant]
     Indication: Product used for unknown indication
     Route: 058

REACTIONS (5)
  - Product supply issue [Unknown]
  - Therapy interrupted [Unknown]
  - Malaise [Unknown]
  - Fatigue [Unknown]
  - Illness [Unknown]
